FAERS Safety Report 7834088-2 (Version None)
Quarter: 2011Q4

REPORT INFORMATION
  Report Type: 
  Country: None (occurrence: None)
  Receive Date: 20111024
  Receipt Date: 20111024
  Transmission Date: 20120403
  Serious: Yes (Other)
  Sender: FDA-Public Use
  Company Number: None

PATIENT
  Age: 28 Year
  Sex: Female
  Weight: 83.914 kg

DRUGS (1)
  1. LUPRON DEPOT [Suspect]
     Indication: ENDOMETRIOSIS
     Dosage: 1 INJECTION
     Route: 042
     Dates: start: 20110318, end: 20110430

REACTIONS (7)
  - SUICIDE ATTEMPT [None]
  - PELVIC PAIN [None]
  - HOT FLUSH [None]
  - HEADACHE [None]
  - AMNESIA [None]
  - MOOD SWINGS [None]
  - IMPAIRED WORK ABILITY [None]
